FAERS Safety Report 9689612 (Version 2)
Quarter: 2013Q4

REPORT INFORMATION
  Report Type: Spontaneous
  Country: US (occurrence: US)
  Receive Date: 20131115
  Receipt Date: 20131213
  Transmission Date: 20140711
  Serious: Yes (Hospitalization)
  Sender: FDA-Public Use
  Company Number: US-BIOGENIDEC-2013BI104257

PATIENT
  Age: 22 Year
  Sex: Female

DRUGS (9)
  1. TYSABRI [Suspect]
     Indication: CROHN^S DISEASE
     Route: 042
     Dates: start: 20130918, end: 20131016
  2. ATIVAN [Concomitant]
     Indication: ANXIETY
     Route: 048
  3. OMEPRAZOLE [Concomitant]
     Route: 048
  4. NORCO [Concomitant]
     Route: 048
  5. PREDNISONE [Concomitant]
     Route: 048
  6. VALIUM [Concomitant]
     Indication: ANXIETY
     Route: 048
  7. COLACE [Concomitant]
     Route: 048
  8. HEPARIN [Concomitant]
     Indication: THROMBOSIS PROPHYLAXIS
  9. DRISDOL [Concomitant]
     Route: 048

REACTIONS (16)
  - Grand mal convulsion [Recovered/Resolved]
  - Septic shock [Recovered/Resolved]
  - Dehydration [Unknown]
  - Retching [Unknown]
  - Nausea [Unknown]
  - Decreased appetite [Unknown]
  - Pruritus [Unknown]
  - Crohn^s disease [Not Recovered/Not Resolved]
  - Sinus tachycardia [Recovered/Resolved]
  - Chest pain [Recovered/Resolved]
  - Staphylococcal infection [Unknown]
  - Urinary tract infection [Recovered/Resolved]
  - Intestinal fibrosis [Unknown]
  - Pyrexia [Unknown]
  - Postoperative wound complication [Unknown]
  - Drug ineffective [Unknown]
